FAERS Safety Report 19164864 (Version 2)
Quarter: 2021Q3

REPORT INFORMATION
  Report Type: Spontaneous
  Country: US (occurrence: US)
  Receive Date: 20210421
  Receipt Date: 20210729
  Transmission Date: 20211014
  Serious: No
  Sender: FDA-Public Use
  Company Number: US-PARATEK PHARMACEUTICALS, INC.-2021PTK00038

PATIENT
  Age: 53 Year
  Sex: Female
  Weight: 60.32 kg

DRUGS (5)
  1. LINEZOLID. [Concomitant]
     Active Substance: LINEZOLID
  2. NUZYRA [Suspect]
     Active Substance: OMADACYCLINE
     Indication: SUBCUTANEOUS ABSCESS
     Dosage: 300 MG, 1X/DAY
     Route: 048
     Dates: start: 20210312, end: 20210324
  3. NUZYRA [Suspect]
     Active Substance: OMADACYCLINE
     Indication: ABSCESS LIMB
     Dosage: 300 MG, 1X/DAY
     Route: 048
     Dates: start: 20210329
  4. NUZYRA [Suspect]
     Active Substance: OMADACYCLINE
     Indication: MYCOBACTERIAL INFECTION
     Dosage: 400 MG, 1X/DAY
     Route: 048
     Dates: start: 20210310, end: 20210311
  5. NUZYRA [Suspect]
     Active Substance: OMADACYCLINE
     Indication: SKIN INFECTION

REACTIONS (5)
  - Diarrhoea [Not Recovered/Not Resolved]
  - Product dose omission issue [Recovered/Resolved]
  - Abdominal discomfort [Not Recovered/Not Resolved]
  - Off label use [Not Recovered/Not Resolved]
  - Weight decreased [Not Recovered/Not Resolved]

NARRATIVE: CASE EVENT DATE: 202103
